FAERS Safety Report 4868634-8 (Version None)
Quarter: 2005Q4

REPORT INFORMATION
  Report Type: 
  Country: None (occurrence: None)
  Receive Date: 20051223
  Receipt Date: 20051213
  Transmission Date: 20060501
  Serious: Yes (Death)
  Sender: FDA-Public Use
  Company Number: 2005S1011911

PATIENT
  Age: 49 Year
  Sex: Female

DRUGS (2)
  1. CLOZAPINE [Suspect]
     Dosage: 100 MG QAM ORAL; 300 MG HS ORAL
     Route: 048
     Dates: start: 20050128, end: 20051213
  2. CLOZAPINE [Suspect]
     Dosage: 100 MG QAM ORAL; 300 MG HS ORAL
     Route: 048
     Dates: start: 20050128, end: 20051213

REACTIONS (1)
  - DEATH [None]
